FAERS Safety Report 14934954 (Version 1)
Quarter: 2018Q2

REPORT INFORMATION
  Report Type: Spontaneous
  Country: US (occurrence: US)
  Receive Date: 20180506
  Receipt Date: 20180506
  Transmission Date: 20180711
  Serious: No
  Sender: FDA-Public Use
  Company Number: None

PATIENT
  Age: 84 Year
  Sex: Female

DRUGS (1)
  1. FORTEO [Suspect]
     Active Substance: TERIPARATIDE
     Indication: OSTEOPOROSIS
     Dosage: 600/2.4 UG/ML QD SQ?
     Route: 058
     Dates: start: 20170717

REACTIONS (1)
  - Myalgia [None]

NARRATIVE: CASE EVENT DATE: 20180426
